FAERS Safety Report 16860128 (Version 1)
Quarter: 2019Q3

REPORT INFORMATION
  Report Type: Spontaneous
  Country: JP (occurrence: JP)
  Receive Date: 20190927
  Receipt Date: 20190927
  Transmission Date: 20191005
  Serious: Yes (Other)
  Sender: FDA-Public Use
  Company Number: JP-PFIZER INC-2019403111

PATIENT
  Age: 50 Year
  Sex: Male

DRUGS (9)
  1. OXALIPLATIN. [Suspect]
     Active Substance: OXALIPLATIN
     Dosage: 85 MG/M2, EVERY 3 WEEKS (5 CYCLES)
  2. CALCIUM FOLINATE [Suspect]
     Active Substance: LEUCOVORIN CALCIUM
     Indication: COLON CANCER METASTATIC
  3. 5 FLUOROURACIL [FLUOROURACIL] [Suspect]
     Active Substance: FLUOROURACIL
     Indication: COLON CANCER METASTATIC
     Dosage: UNK, EVERY 3 WEEKS (BOLUS INJECTION, FOLLOWED BY ITS CONTINUOUS INFUSION FOR 46 H)
     Route: 040
  4. 5 FLUOROURACIL [FLUOROURACIL] [Suspect]
     Active Substance: FLUOROURACIL
     Indication: METASTASES TO LIVER
     Dosage: UNK, EVERY 3 WEEKS (BOLUS INJECTION, FOLLOWED BY ITS CONTINUOUS INFUSION FOR 46 H WITH A PUMP)
  5. BEVACIZUMAB. [Suspect]
     Active Substance: BEVACIZUMAB
     Indication: COLON CANCER METASTATIC
  6. OXALIPLATIN. [Suspect]
     Active Substance: OXALIPLATIN
     Indication: METASTASES TO LIVER
     Dosage: 70 MG/M2, EVERY 3 WEEKS
  7. OXALIPLATIN. [Suspect]
     Active Substance: OXALIPLATIN
     Indication: COLON CANCER METASTATIC
     Dosage: 60 MG/M2, EVERY 3 WEEKS (70% OF STANDARD DOSE 85 MG/M^2))
  8. BEVACIZUMAB. [Suspect]
     Active Substance: BEVACIZUMAB
     Indication: METASTASES TO LIVER
     Dosage: UNK, EVERY 3 WEEKS (INFUSION OVER 90 MIN)
  9. CALCIUM FOLINATE [Suspect]
     Active Substance: LEUCOVORIN CALCIUM
     Indication: METASTASES TO LIVER
     Dosage: UNK, EVERY 3 WEEKS (OXALIPLATIN AND LEVOFOLINATE WERE ADMINISTERED SIMULTANEOUSLY FOR 2 H)

REACTIONS (1)
  - Neuropathy peripheral [Unknown]
